FAERS Safety Report 23168945 (Version 1)
Quarter: 2023Q4

REPORT INFORMATION
  Report Type: Spontaneous
  Country: ES (occurrence: ES)
  Receive Date: 20231110
  Receipt Date: 20231110
  Transmission Date: 20240109
  Serious: Yes (Other)
  Sender: FDA-Public Use
  Company Number: ES-JNJFOC-20231109449

PATIENT

DRUGS (1)
  1. IMBRUVICA [Suspect]
     Active Substance: IBRUTINIB
     Indication: Chronic lymphocytic leukaemia
     Route: 048

REACTIONS (9)
  - Autoimmune disorder [Unknown]
  - Infection [Unknown]
  - Blood disorder [Unknown]
  - Hypertension [Unknown]
  - Cytopenia [Unknown]
  - Adverse event [Unknown]
  - Haemorrhage [Unknown]
  - Thrombocytopenia [Unknown]
  - Embolism [Unknown]
